FAERS Safety Report 9832342 (Version 1)
Quarter: 2014Q1

REPORT INFORMATION
  Report Type: Spontaneous
  Country: US (occurrence: US)
  Receive Date: 20140121
  Receipt Date: 20140121
  Transmission Date: 20141002
  Serious: No
  Sender: FDA-Public Use
  Company Number: US-TARO-2013P1009808

PATIENT
  Age: 58 Year
  Sex: Female
  Weight: 97.52 kg

DRUGS (1)
  1. CLOTRIMAZOLE ANTIFUNGAL [Suspect]
     Indication: VULVOVAGINAL MYCOTIC INFECTION
     Route: 067
     Dates: start: 20130616, end: 20130619

REACTIONS (2)
  - Drug effect incomplete [Not Recovered/Not Resolved]
  - Application site swelling [Recovering/Resolving]
